FAERS Safety Report 9931474 (Version 3)
Quarter: 2014Q1

REPORT INFORMATION
  Report Type: Spontaneous
  Country: US (occurrence: US)
  Receive Date: 20140228
  Receipt Date: 20140306
  Transmission Date: 20141002
  Serious: No
  Sender: FDA-Public Use
  Company Number: US-009507513-1402USA012019

PATIENT
  Age: 21 Year
  Sex: Female

DRUGS (1)
  1. NEXPLANON [Suspect]
     Indication: CONTRACEPTION
     Dosage: SINGLE INSERTION
     Route: 059
     Dates: start: 20140114, end: 20140226

REACTIONS (9)
  - Implant site pain [Not Recovered/Not Resolved]
  - Pain [Not Recovered/Not Resolved]
  - Implant site discolouration [Not Recovered/Not Resolved]
  - Purulent discharge [Not Recovered/Not Resolved]
  - Bloody discharge [Not Recovered/Not Resolved]
  - Medical device complication [Unknown]
  - Implant site inflammation [Unknown]
  - Implant site erythema [Unknown]
  - Implant site infection [Unknown]
